FAERS Safety Report 21137910 (Version 1)
Quarter: 2022Q3

REPORT INFORMATION
  Report Type: Spontaneous
  Country: BE (occurrence: BE)
  Receive Date: 20220727
  Receipt Date: 20220727
  Transmission Date: 20221026
  Serious: Yes (Other)
  Sender: FDA-Public Use
  Company Number: BE-009507513-2207BEL002172

PATIENT

DRUGS (9)
  1. BEVACIZUMAB [Suspect]
     Active Substance: BEVACIZUMAB
     Indication: Malignant neoplasm progression
     Dosage: UNK
     Dates: start: 202205
  2. BEVACIZUMAB [Suspect]
     Active Substance: BEVACIZUMAB
     Indication: Glioblastoma
  3. CARBOPLATIN [Suspect]
     Active Substance: CARBOPLATIN
     Indication: Glioblastoma
     Dosage: UNK
     Dates: start: 202111
  4. CARBOPLATIN [Suspect]
     Active Substance: CARBOPLATIN
     Indication: Malignant neoplasm progression
  5. LOMUSTINE [Suspect]
     Active Substance: LOMUSTINE
     Indication: Glioblastoma
     Dosage: 1 COURSE OF LOMUSTINE
     Dates: start: 2021
  6. LOMUSTINE [Suspect]
     Active Substance: LOMUSTINE
     Indication: Malignant neoplasm progression
     Dosage: AFTER GAMMAKNIFE FOLLOWED BY ANOTHER COURSE OF LOMUSTINE
     Dates: start: 202108
  7. TEMOZOLOMIDE [Suspect]
     Active Substance: TEMOZOLOMIDE
     Indication: Glioblastoma
     Dosage: UNK
     Route: 048
     Dates: end: 201903
  8. TEMOZOLOMIDE [Suspect]
     Active Substance: TEMOZOLOMIDE
     Dosage: 6 COURSES TEMOZOLOMIDE AS MONOTHERAPY
     Route: 048
     Dates: start: 201903, end: 2019
  9. TEMOZOLOMIDE [Suspect]
     Active Substance: TEMOZOLOMIDE
     Dosage: RESTART TEMOZOLOMIDE AFTER 16 MONTHS^ STOP, 6 ADDITIONAL TEMOZOLOMIDE COURSES
     Route: 048
     Dates: start: 202102

REACTIONS (4)
  - Gamma radiation therapy [Unknown]
  - Malignant neoplasm progression [Unknown]
  - Radiation necrosis [Unknown]
  - Off label use [Unknown]

NARRATIVE: CASE EVENT DATE: 20210801
